FAERS Safety Report 9356681 (Version 4)
Quarter: 2013Q3

REPORT INFORMATION
  Report Type: Spontaneous
  Country: GB (occurrence: GB)
  Receive Date: 20130619
  Receipt Date: 20130809
  Transmission Date: 20140515
  Serious: Yes (Other)
  Sender: FDA-Public Use
  Company Number: GB-009507513-1306GBR005188

PATIENT
  Sex: Female

DRUGS (3)
  1. COSOPT PRESERVATIVE-FREE SINGLE DOSE EYE DROPS [Suspect]
     Dosage: UNK
     Route: 047
     Dates: start: 201210
  2. COZAAR 12,5 MG [Concomitant]
     Indication: BLOOD PRESSURE
     Dosage: UNK
  3. ALENDRONIC ACID [Concomitant]
     Indication: OSTEOPOROSIS
     Dosage: UNK

REACTIONS (7)
  - Blindness transient [Recovered/Resolved]
  - Anxiety [Not Recovered/Not Resolved]
  - Burning sensation [Not Recovered/Not Resolved]
  - Muscular weakness [Not Recovered/Not Resolved]
  - Amnesia [Not Recovered/Not Resolved]
  - Feeling abnormal [Not Recovered/Not Resolved]
  - Nervousness [Not Recovered/Not Resolved]
